FAERS Safety Report 6015078-1 (Version None)
Quarter: 2008Q4

REPORT INFORMATION
  Report Type: 
  Country: None (occurrence: None)
  Receive Date: 20081222
  Receipt Date: 20081209
  Transmission Date: 20090506
  Serious: Yes (Hospitalization)
  Sender: FDA-Public Use
  Company Number: US-JNJFOC-20081003063

PATIENT
  Sex: Female

DRUGS (3)
  1. REMICADE [Suspect]
     Route: 042
  2. REMICADE [Suspect]
     Route: 042
  3. REMICADE [Suspect]
     Indication: CROHN'S DISEASE
     Route: 042

REACTIONS (9)
  - CARDIAC DISORDER [None]
  - COAGULOPATHY [None]
  - DEHYDRATION [None]
  - FAILURE TO THRIVE [None]
  - HYPOGLYCAEMIA [None]
  - RENAL FAILURE CHRONIC [None]
  - STAPHYLOCOCCAL SEPSIS [None]
  - TACHYCARDIA [None]
  - VENTRICULAR TACHYCARDIA [None]
